FAERS Safety Report 6682338-0 (Version None)
Quarter: 2010Q2

REPORT INFORMATION
  Report Type: 
  Country: None (occurrence: None)
  Receive Date: 20100415
  Receipt Date: 20100406
  Transmission Date: 20101027
  Serious: Yes (Other)
  Sender: FDA-Public Use
  Company Number: AU-PFIZER INC-2010043470

PATIENT
  Sex: Female

DRUGS (5)
  1. CHAMPIX [Suspect]
     Dosage: UNK
  2. ENALAPRIL MALEATE [Concomitant]
     Dosage: 20 MG, 1X/DAY
  3. ZANIDIP [Concomitant]
     Dosage: 10 MG, 1X/DAY
  4. LOSEC [Concomitant]
     Dosage: 20 MG, 1X/DAY
  5. LIPITOR [Concomitant]
     Dosage: 20 MG, 1X/DAY

REACTIONS (4)
  - EYE SWELLING [None]
  - GLOSSITIS [None]
  - LIP SWELLING [None]
  - OEDEMA PERIPHERAL [None]
